FAERS Safety Report 4286086-6 (Version None)
Quarter: 2004Q1

REPORT INFORMATION
  Report Type: 
  Country: None (occurrence: None)
  Receive Date: 20040120
  Receipt Date: 20021218
  Transmission Date: 20041129
  Serious: Yes (Death, Life-Threatening, Hospitalization)
  Sender: FDA-Public Use
  Company Number: A03200200617

PATIENT
  Age: 89 Year
  Sex: Female
  Weight: 58.9676 kg

DRUGS (12)
  1. PLAVIX [Suspect]
     Indication: CARDIAC VALVE DISEASE
     Dosage: 75 MG QD - ORAL
     Route: 048
     Dates: start: 20020501, end: 20020619
  2. ACETYLSALICYLIC ACID - 81 MG [Suspect]
     Indication: LACUNAR INFARCTION
     Dosage: 81 MG QD - ORAL
     Route: 048
     Dates: start: 20010823, end: 20020619
  3. ACETYLSALICYLIC ACID - 81 MG [Suspect]
     Indication: TRANSIENT ISCHAEMIC ATTACK
     Dosage: 81 MG QD - ORAL
     Route: 048
     Dates: start: 20010823, end: 20020619
  4. FUROSEMIDE [Concomitant]
  5. ESOMEPRAZOLE [Concomitant]
  6. RABEPRAZOLE SODIUM [Concomitant]
  7. POTASSIUM [Concomitant]
  8. TOLTERODINE L-TARTRATE [Concomitant]
  9. ALPRAZOLAM [Concomitant]
  10. TRIAMCINOLONE ACETONIDE [Concomitant]
  11. ALBUTEROL/ IPRATROPIUM [Concomitant]
  12. QUININE [Concomitant]

REACTIONS (2)
  - SUBARACHNOID HAEMORRHAGE [None]
  - SUBDURAL HAEMATOMA [None]
